FAERS Safety Report 16327638 (Version 1)
Quarter: 2019Q2

REPORT INFORMATION
  Report Type: Not Available
  Country: US (occurrence: US)
  Receive Date: 20190517
  Receipt Date: 20190517
  Transmission Date: 20190711
  Serious: No
  Sender: FDA-Public Use
  Company Number: US-BAUSCH-BL-2019-014324

PATIENT

DRUGS (6)
  1. TRULANCE [Suspect]
     Active Substance: PLECANATIDE
     Indication: CONSTIPATION
     Dosage: 3 MG, QD
     Route: 048
     Dates: start: 201903
  2. FLECAINIDE [Concomitant]
     Active Substance: FLECAINIDE
     Indication: ARRHYTHMIA
     Dosage: 50 MG, QD
     Route: 048
  3. ALDACTONE [Concomitant]
     Active Substance: SPIRONOLACTONE
     Indication: PRODUCT USED FOR UNKNOWN INDICATION
     Dosage: UNK
  4. SYNTHROID [Concomitant]
     Active Substance: LEVOTHYROXINE SODIUM
     Indication: HYPOTHYROIDISM
     Dosage: 38.5 ???G, QD
     Route: 048
  5. COZAAR [Concomitant]
     Active Substance: LOSARTAN POTASSIUM
     Indication: HYPERTENSION
     Dosage: 50 MG, BID
     Route: 048
  6. SENNA                              /00142201/ [Concomitant]
     Active Substance: SENNA LEAF
     Indication: PRODUCT USED FOR UNKNOWN INDICATION
     Dosage: 2 DF DAILY
     Dates: end: 2019

REACTIONS (3)
  - Dyspnoea [Not Recovered/Not Resolved]
  - Musculoskeletal pain [Not Recovered/Not Resolved]
  - Chest discomfort [Not Recovered/Not Resolved]

NARRATIVE: CASE EVENT DATE: 201903
